FAERS Safety Report 12878097 (Version 1)
Quarter: 2016Q4

REPORT INFORMATION
  Report Type: Spontaneous
  Country: US (occurrence: US)
  Receive Date: 20161024
  Receipt Date: 20161024
  Transmission Date: 20170207
  Serious: No
  Sender: FDA-Public Use
  Company Number: US-ENDO PHARMACEUTICALS INC.-2016-000382

PATIENT
  Age: 60 Year
  Sex: Male
  Weight: 123.49 kg

DRUGS (2)
  1. VANTAS [Suspect]
     Active Substance: HISTRELIN ACETATE
     Dosage: ONE IMPLANT
     Route: 058
     Dates: start: 20141219, end: 20160114
  2. VANTAS [Suspect]
     Active Substance: HISTRELIN ACETATE
     Indication: PROSTATE CANCER
     Dosage: ONE IMPLANT
     Route: 058
     Dates: start: 20160114

REACTIONS (1)
  - Device breakage [Unknown]

NARRATIVE: CASE EVENT DATE: 20160114
